FAERS Safety Report 9783457 (Version 5)
Quarter: 2014Q2

REPORT INFORMATION
  Report Type: Spontaneous
  Country: DE (occurrence: DE)
  Receive Date: 20131226
  Receipt Date: 20140416
  Transmission Date: 20141212
  Serious: Yes (Congenital Anomaly, Other)
  Sender: FDA-Public Use
  Company Number: DE-PFIZER INC-2013365620

PATIENT
  Sex: Female

DRUGS (10)
  1. GABAPENTIN [Suspect]
     Indication: PAIN
     Dosage: 800 MG, 3X/DAY
     Route: 064
  2. GABAPENTIN [Suspect]
     Dosage: 800 MG, 3X/DAY
     Route: 064
  3. BISOPROLOL FUMARATE [Suspect]
     Indication: HEART VALVE REPLACEMENT
     Dosage: 2.5 MG, DAILY
     Route: 064
     Dates: start: 20090801, end: 20100315
  4. AMIODARONE HCL [Suspect]
     Indication: ARRHYTHMIA
     Dosage: 200 MG, DAILY
     Route: 064
  5. AMITRIPTYLINE [Suspect]
     Indication: PAIN
     Dosage: 75 MG, DAILY
     Route: 064
     Dates: start: 20090801, end: 20100315
  6. BUPRENORPHINE [Suspect]
     Indication: PAIN
     Dosage: 70 ?G/HOUR
     Route: 064
     Dates: start: 20090801
  7. OMEPRAZOLE [Concomitant]
     Indication: PROPHYLAXIS AGAINST GASTROINTESTINAL ULCER
     Dosage: UNK
     Route: 064
  8. MOVICOL [Concomitant]
     Indication: LAXATIVE SUPPORTIVE CARE
     Dosage: UNK
     Route: 064
     Dates: start: 20090801, end: 20100315
  9. ACETYLSALICYLIC ACID [Concomitant]
     Indication: THROMBOSIS PROPHYLAXIS
     Dosage: 100 MG, DAILY
     Route: 064
     Dates: start: 20090801, end: 20100315
  10. FOLIC ACID/IODINE/MINERALS NOS/PROTEIN/VITAMINS NOS [Concomitant]
     Indication: PROPHYLAXIS OF NEURAL TUBE DEFECT
     Dosage: 0.4 MG, 1X/DAY
     Route: 064

REACTIONS (5)
  - Maternal exposure during pregnancy [Not Recovered/Not Resolved]
  - Ventricular septal defect [Recovered/Resolved]
  - Small for dates baby [Recovered/Resolved]
  - Atrial septal defect [Not Recovered/Not Resolved]
  - Premature baby [Unknown]
